FAERS Safety Report 18418749 (Version 1)
Quarter: 2020Q4

REPORT INFORMATION
  Report Type: Other
  Country: QA (occurrence: QA)
  Receive Date: 20201023
  Receipt Date: 20201023
  Transmission Date: 20210114
  Serious: Yes (Hospitalization)
  Sender: FDA-Public Use
  Company Number: QA-LAURUS LABS LIMITED-202000205

PATIENT
  Age: 45 Year
  Sex: Male

DRUGS (1)
  1. METFORMIN [Suspect]
     Active Substance: METFORMIN HYDROCHLORIDE
     Indication: TYPE 2 DIABETES MELLITUS

REACTIONS (11)
  - Osmolar gap [Recovered/Resolved]
  - Tachycardia [Recovered/Resolved]
  - Polyuria [Recovered/Resolved]
  - Abdominal pain [Recovered/Resolved]
  - Renal tubular necrosis [Recovered/Resolved]
  - Dehydration [Recovered/Resolved]
  - Diarrhoea [Recovered/Resolved]
  - Vomiting [Recovered/Resolved]
  - Malaise [Recovered/Resolved]
  - Lactic acidosis [Recovered/Resolved]
  - Acute kidney injury [Recovered/Resolved]
